FAERS Safety Report 5720480-9 (Version None)
Quarter: 2008Q2

REPORT INFORMATION
  Report Type: 
  Country: None (occurrence: None)
  Receive Date: 20080428
  Receipt Date: 20080418
  Transmission Date: 20081010
  Serious: Yes (Life-Threatening)
  Sender: FDA-Public Use
  Company Number: FR-PFIZER INC-2008035258

PATIENT
  Sex: Female

DRUGS (4)
  1. SALAZOPYRINE [Suspect]
     Indication: ANKYLOSING SPONDYLITIS
     Dosage: DAILY DOSE:2GRAM
     Route: 048
     Dates: start: 20071101, end: 20080107
  2. PRISTINAMYCIN [Concomitant]
     Route: 048
     Dates: start: 20080105, end: 20080107
  3. LEVOFLOXACIN [Concomitant]
     Route: 048
     Dates: start: 20080102, end: 20080104
  4. AMOXICILLIN [Concomitant]
     Route: 048
     Dates: start: 20071231, end: 20080101

REACTIONS (2)
  - AGRANULOCYTOSIS [None]
  - CHOLESTASIS [None]
